FAERS Safety Report 7434352-5 (Version None)
Quarter: 2011Q2

REPORT INFORMATION
  Report Type: 
  Country: None (occurrence: None)
  Receive Date: 20110425
  Receipt Date: 20110421
  Transmission Date: 20111010
  Serious: No
  Sender: FDA-Public Use
  Company Number: US-PFIZER INC-2011087348

PATIENT
  Sex: Male

DRUGS (8)
  1. GEODON [Suspect]
     Indication: PSYCHOTIC DISORDER
  2. PRAVACHOL [Concomitant]
     Dosage: 80 MG, 1X/DAY
     Route: 048
  3. PRILOSEC [Concomitant]
     Dosage: 20 MG, 1X/DAY
     Route: 048
  4. ZANTAC [Concomitant]
     Dosage: 150 MG, 2X/DAY
     Route: 048
  5. GEODON [Suspect]
     Indication: DEMENTIA
     Dosage: UNK
     Route: 048
  6. DEPAKOTE [Concomitant]
     Dosage: 250 MG, 2X/DAY
     Route: 048
  7. LEXAPRO [Concomitant]
     Dosage: 10 MG, 1X/DAY
     Route: 048
  8. AMIODARONE [Concomitant]
     Dosage: 200 MG, 1X/DAY
     Route: 048

REACTIONS (2)
  - WEIGHT DECREASED [None]
  - DYSPHAGIA [None]
